FAERS Safety Report 7210066-1 (Version None)
Quarter: 2011Q1

REPORT INFORMATION
  Report Type: 
  Country: None (occurrence: None)
  Receive Date: 20110105
  Receipt Date: 20101228
  Transmission Date: 20110831
  Serious: Yes (Life-Threatening, Hospitalization, Other)
  Sender: FDA-Public Use
  Company Number: CZ-AMGEN-CZESP2010006185

PATIENT

DRUGS (6)
  1. MICARDIS [Concomitant]
     Dosage: 80 MG, BID (1 TABLET IN THE MORNING,HALF TABLET IN THE EVENING)
     Route: 048
  2. APO-ACEBUTOLOL [Concomitant]
     Dosage: 400 MG, BID (HALF TABLETIN THE MORNING, HALF TABLET IN THE EVENING)
     Route: 048
  3. HYPOTYLIN [Concomitant]
     Dosage: UNK, 1 TBL. IN THE MORNING
     Route: 048
  4. MILURIT [Concomitant]
     Dosage: UNK, 1 TBL. IN THE MORNING
     Route: 048
  5. CYNT [Concomitant]
     Dosage: 0.4 MG, QD
     Route: 048
  6. ETANERCEPT [Suspect]
     Indication: PSORIASIS
     Dosage: UNK
     Route: 058
     Dates: start: 20070101, end: 20100101

REACTIONS (1)
  - VULVAL CANCER [None]
